FAERS Safety Report 24723609 (Version 3)
Quarter: 2025Q1

REPORT INFORMATION
  Report Type: Spontaneous
  Country: US (occurrence: US)
  Receive Date: 20241211
  Receipt Date: 20250313
  Transmission Date: 20250408
  Serious: No
  Sender: SANOFI AVENTIS
  Company Number: US-SA-2024SA365274

PATIENT
  Age: 19 Year
  Sex: Male

DRUGS (2)
  1. ALPROLIX [Suspect]
     Active Substance: EFTRENONACOG ALFA
     Route: 042
  2. ALPROLIX [Suspect]
     Active Substance: EFTRENONACOG ALFA
     Route: 042

REACTIONS (3)
  - Traumatic haemorrhage [Unknown]
  - Inappropriate schedule of product administration [Unknown]
  - Haemorrhage [Unknown]

NARRATIVE: CASE EVENT DATE: 20241101
